FAERS Safety Report 18208926 (Version 3)
Quarter: 2020Q4

REPORT INFORMATION
  Report Type: Spontaneous
  Country: ES (occurrence: ES)
  Receive Date: 20200828
  Receipt Date: 20201012
  Transmission Date: 20210113
  Serious: No
  Sender: FDA-Public Use
  Company Number: ES-PUMA BIOTECHNOLOGY, LTD.-2020ES002249

PATIENT
  Age: 53 Year
  Sex: Female

DRUGS (3)
  1. NERLYNX [Suspect]
     Active Substance: NERATINIB
     Indication: OFF LABEL USE
     Dosage: 200 MG, QD (1/DAY)
     Route: 048
  2. NERLYNX [Suspect]
     Active Substance: NERATINIB
     Indication: OVARIAN CANCER
     Dosage: 240 MG, QD (1/DAY)
     Route: 048
     Dates: start: 20191218
  3. LOPERAMIDE [Concomitant]
     Active Substance: LOPERAMIDE
     Indication: PROPHYLAXIS AGAINST DIARRHOEA
     Dosage: UNK UNK, UNKNOWN
     Route: 065

REACTIONS (3)
  - Off label use [Unknown]
  - Diarrhoea [Unknown]
  - Product use in unapproved indication [Unknown]
